FAERS Safety Report 11202537 (Version 3)
Quarter: 2017Q2

REPORT INFORMATION
  Report Type: Spontaneous
  Country: US (occurrence: US)
  Receive Date: 20150619
  Receipt Date: 20170629
  Transmission Date: 20170829
  Serious: No
  Sender: FDA-Public Use
  Company Number: US-PFIZER INC-2015203141

PATIENT
  Age: 66 Year
  Sex: Female
  Weight: 42 kg

DRUGS (14)
  1. PREMARIN [Concomitant]
     Active Substance: ESTROGENS, CONJUGATED
     Dosage: 3 MG, 1X/DAY (IN THE MORNING)
     Route: 048
  2. CLONIDINE. [Concomitant]
     Active Substance: CLONIDINE
     Indication: HYPERTENSION
     Dosage: 0.05 MG, 2X/DAY (HALF TABELT TWICE DAILY)
  3. LYRICA [Suspect]
     Active Substance: PREGABALIN
     Indication: NERVE INJURY
     Dosage: 25 MG, DAILY (25 MG ONE CAPSULE A DAY )
     Dates: start: 20150604
  4. LYRICA [Suspect]
     Active Substance: PREGABALIN
     Dosage: 25 MG, 2X/DAY
  5. MORPHINE [Concomitant]
     Active Substance: MORPHINE
     Indication: PAIN
     Dosage: 12.5 MG, AS NEEDED (QUARTER OF A TABLET AT NIGHT AS NEEDED)
  6. ROPINIROLE. [Concomitant]
     Active Substance: ROPINIROLE
     Indication: SLEEP DISORDER
  7. FENOFIBRATE. [Concomitant]
     Active Substance: FENOFIBRATE
     Dosage: 54 MG, 3X/DAY
  8. LYRICA [Suspect]
     Active Substance: PREGABALIN
     Dosage: UNK
     Dates: start: 201609
  9. LYRICA [Suspect]
     Active Substance: PREGABALIN
     Dosage: 25 MG, 2X/DAY
     Route: 048
     Dates: start: 20170511
  10. LISINOPRIL. [Concomitant]
     Active Substance: LISINOPRIL
     Indication: HYPERTENSION
     Dosage: 10 MG, 1X/DAY AT DINNER
  11. ROPINIROLE. [Concomitant]
     Active Substance: ROPINIROLE
     Indication: PAIN
     Dosage: 0.375 MG, DAILY (0.25MG, HALF A TABLET AT 8:45PM AND A FULL TABLET AT 10PM )
  12. PREMARIN [Concomitant]
     Active Substance: ESTROGENS, CONJUGATED
     Indication: HORMONE LEVEL ABNORMAL
     Dosage: 0.3 MG, 1X/DAY
  13. METFORMIN HYDROCHLORIDE. [Concomitant]
     Active Substance: METFORMIN HYDROCHLORIDE
     Dosage: 500 MG, UNK
  14. LISINOPRIL. [Concomitant]
     Active Substance: LISINOPRIL
     Dosage: 2.5 MG, 2X/DAY (HALF A TABLET BY MOUTH TWICE DAILY)
     Route: 048

REACTIONS (10)
  - Condition aggravated [Not Recovered/Not Resolved]
  - Nausea [Not Recovered/Not Resolved]
  - Increased appetite [Recovering/Resolving]
  - Nervousness [Unknown]
  - Tremor [Not Recovered/Not Resolved]
  - Headache [Recovering/Resolving]
  - Dysphonia [Unknown]
  - Coordination abnormal [Not Recovered/Not Resolved]
  - Vision blurred [Recovering/Resolving]
  - Asthenia [Not Recovered/Not Resolved]

NARRATIVE: CASE EVENT DATE: 20150604
